FAERS Safety Report 7603902-8 (Version None)
Quarter: 2011Q3

REPORT INFORMATION
  Report Type: 
  Country: None (occurrence: None)
  Receive Date: 20110712
  Receipt Date: 20110627
  Transmission Date: 20111222
  Serious: Yes (Death, Other)
  Sender: FDA-Public Use
  Company Number: CN-WATSON-2011-09878

PATIENT
  Age: 67 Year
  Sex: Male

DRUGS (5)
  1. VINCRISTINE [Suspect]
     Indication: DIFFUSE LARGE B-CELL LYMPHOMA
     Route: 065
  2. RITUXIMAB [Suspect]
     Indication: DIFFUSE LARGE B-CELL LYMPHOMA
     Dosage: 500 MG, UNK
  3. PREDNISONE [Suspect]
     Indication: DIFFUSE LARGE B-CELL LYMPHOMA
     Dosage: 60 MG
     Route: 065
  4. DOXORUBICIN HCL [Suspect]
     Indication: DIFFUSE LARGE B-CELL LYMPHOMA
     Route: 065
  5. CYCLOPHOSPHAMIDE [Suspect]
     Indication: DIFFUSE LARGE B-CELL LYMPHOMA
     Route: 065

REACTIONS (5)
  - ACUTE RESPIRATORY DISTRESS SYNDROME [None]
  - NEUTROPENIA [None]
  - INFECTIOUS PERITONITIS [None]
  - DIARRHOEA [None]
  - INTESTINAL HAEMORRHAGE [None]
